FAERS Safety Report 4918618-6 (Version None)
Quarter: 2006Q1

REPORT INFORMATION
  Report Type: 
  Country: None (occurrence: None)
  Receive Date: 20060221
  Receipt Date: 20060221
  Transmission Date: 20060701
  Serious: Yes (Other)
  Sender: FDA-Public Use
  Company Number: None

PATIENT
  Age: 67 Year
  Sex: Female
  Weight: 63.5036 kg

DRUGS (2)
  1. FOSAMAX [Suspect]
     Indication: OSTEOPENIA
     Dosage: ONE PER WEEK   ONE PER WEEK   PO
     Route: 048
     Dates: start: 20040401, end: 20050331
  2. FOSAMAX [Suspect]
     Indication: OSTEOPOROSIS
     Dosage: ONE PER WEEK   ONE PER WEEK   PO
     Route: 048
     Dates: start: 20040401, end: 20050331

REACTIONS (2)
  - MYALGIA [None]
  - PHARMACEUTICAL PRODUCT COMPLAINT [None]
